FAERS Safety Report 16351367 (Version 1)
Quarter: 2019Q2

REPORT INFORMATION
  Report Type: Spontaneous
  Country: SE (occurrence: SE)
  Receive Date: 20190524
  Receipt Date: 20190524
  Transmission Date: 20190711
  Serious: Yes (Hospitalization)
  Sender: FDA-Public Use
  Company Number: SE-LEO PHARMA-318710

PATIENT
  Sex: Female

DRUGS (1)
  1. PROTOPIC [Suspect]
     Active Substance: TACROLIMUS
     Indication: WOUND

REACTIONS (3)
  - Product use in unapproved indication [Unknown]
  - Product administration error [Unknown]
  - Hospitalisation [Unknown]
